FAERS Safety Report 23110982 (Version 1)
Quarter: 2023Q4

REPORT INFORMATION
  Report Type: Report from Study
  Country: US (occurrence: US)
  Receive Date: 20231026
  Receipt Date: 20231026
  Transmission Date: 20240110
  Serious: Yes (Other)
  Sender: FDA-Public Use
  Company Number: US-JNJFOC-20231046222

PATIENT
  Age: 67 Year
  Sex: Female

DRUGS (1)
  1. DARATUMUMAB [Suspect]
     Active Substance: DARATUMUMAB
     Indication: Plasma cell myeloma
     Dosage: 50CC/HR TO  100 CC/HR TO 150 CC/HR TILL 200CC/HR
     Route: 042
     Dates: start: 20230616

REACTIONS (20)
  - Neuropathy peripheral [Unknown]
  - Oedema peripheral [Unknown]
  - Cough [Recovering/Resolving]
  - Back pain [Recovered/Resolved]
  - Nasal congestion [Recovered/Resolved]
  - Dizziness [Unknown]
  - Headache [Unknown]
  - Anxiety [Unknown]
  - Rash [Unknown]
  - Constipation [Unknown]
  - Asthenia [Unknown]
  - Muscle spasms [Unknown]
  - Musculoskeletal pain [Unknown]
  - Arthralgia [Unknown]
  - Infection [Unknown]
  - Pruritus [Unknown]
  - Nausea [Unknown]
  - Vomiting [Unknown]
  - Diarrhoea [Unknown]
  - Infusion related reaction [Unknown]
